FAERS Safety Report 14181670 (Version 3)
Quarter: 2018Q1

REPORT INFORMATION
  Report Type: Report from Study
  Country: None (occurrence: US)
  Receive Date: 20171113
  Receipt Date: 20180320
  Transmission Date: 20180508
  Serious: Yes (Other)
  Sender: FDA-Public Use
  Company Number: US-ABBVIE-17K-163-2048061-00

PATIENT
  Sex: Female

DRUGS (5)
  1. HUMIRA [Suspect]
     Active Substance: ADALIMUMAB
     Indication: RHEUMATOID ARTHRITIS
     Route: 058
     Dates: start: 201610, end: 201708
  2. FLONASE [Concomitant]
     Active Substance: FLUTICASONE PROPIONATE
     Indication: PRODUCT USED FOR UNKNOWN INDICATION
  3. ADVAIR HFA [Concomitant]
     Active Substance: FLUTICASONE PROPIONATE\SALMETEROL XINAFOATE
     Indication: PRODUCT USED FOR UNKNOWN INDICATION
  4. ALBUTEROL. [Concomitant]
     Active Substance: ALBUTEROL
     Indication: PRODUCT USED FOR UNKNOWN INDICATION
  5. HUMIRA [Suspect]
     Active Substance: ADALIMUMAB
     Route: 058
     Dates: start: 2017

REACTIONS (47)
  - Incorrect dose administered [Not Recovered/Not Resolved]
  - Muscular weakness [Unknown]
  - Tremor [Unknown]
  - Hepatitis C [Unknown]
  - Device issue [Not Recovered/Not Resolved]
  - Lymphadenopathy [Unknown]
  - Nasopharyngitis [Not Recovered/Not Resolved]
  - Pain in extremity [Not Recovered/Not Resolved]
  - Urinary tract infection [Recovered/Resolved]
  - Asthma [Unknown]
  - Haemoptysis [Unknown]
  - Gastrooesophageal reflux disease [Unknown]
  - Abdominal discomfort [Unknown]
  - Back pain [Unknown]
  - Muscle spasms [Not Recovered/Not Resolved]
  - Intervertebral disc degeneration [Recovering/Resolving]
  - Spinal fusion surgery [Recovering/Resolving]
  - Gastritis [Unknown]
  - Gastritis [Unknown]
  - Diabetes mellitus [Unknown]
  - Blister [Unknown]
  - Urticaria [Unknown]
  - Urinary tract infection [Unknown]
  - Malaise [Unknown]
  - Anxiety [Not Recovered/Not Resolved]
  - Fibromyalgia [Unknown]
  - Cough [Unknown]
  - Dermatitis contact [Unknown]
  - Injection site swelling [Not Recovered/Not Resolved]
  - Rheumatoid arthritis [Not Recovered/Not Resolved]
  - Influenza [Unknown]
  - Viral infection [Unknown]
  - Anaesthetic complication pulmonary [Unknown]
  - Spinal flattening [Unknown]
  - Exostosis [Unknown]
  - Lethargy [Unknown]
  - Hernia [Unknown]
  - Feeling abnormal [Unknown]
  - Pruritus [Unknown]
  - Chronic obstructive pulmonary disease [Unknown]
  - Neck pain [Not Recovered/Not Resolved]
  - Vomiting [Unknown]
  - Insomnia [Unknown]
  - Injection site haemorrhage [Not Recovered/Not Resolved]
  - Injection site pain [Not Recovered/Not Resolved]
  - Productive cough [Unknown]
  - Spinal operation [Unknown]

NARRATIVE: CASE EVENT DATE: 2017
